FAERS Safety Report 8346617-3 (Version None)
Quarter: 2012Q2

REPORT INFORMATION
  Report Type: 
  Country: None (occurrence: None)
  Receive Date: 20120509
  Receipt Date: 20120504
  Transmission Date: 20120825
  Serious: Yes (Other)
  Sender: FDA-Public Use
  Company Number: PHHY2010CA08930

PATIENT
  Sex: Female

DRUGS (3)
  1. ZOLEDRONOC ACID [Suspect]
     Dosage: UNK UKN, UNK
     Route: 042
     Dates: start: 20110419
  2. ZOLEDRONOC ACID [Suspect]
     Indication: OSTEOPOROSIS
     Dosage: UNK UKN, UNK
     Route: 042
     Dates: start: 20081009
  3. ZOLEDRONOC ACID [Suspect]
     Dosage: UNK UKN, UNK
     Route: 042
     Dates: start: 20100305

REACTIONS (10)
  - DIARRHOEA [None]
  - KIDNEY INFECTION [None]
  - HEADACHE [None]
  - VOMITING [None]
  - FEELING ABNORMAL [None]
  - MALAISE [None]
  - UPPER LIMB FRACTURE [None]
  - UROSEPSIS [None]
  - CYSTITIS [None]
  - PYREXIA [None]
